FAERS Safety Report 4548605-1 (Version None)
Quarter: 2005Q1

REPORT INFORMATION
  Report Type: 
  Country: None (occurrence: None)
  Receive Date: 20050105
  Receipt Date: 20050105
  Transmission Date: 20050727
  Serious: Yes (Hospitalization)
  Sender: FDA-Public Use
  Company Number: None

PATIENT
  Age: 95 Year
  Sex: Female
  Weight: 64.8 kg

DRUGS (9)
  1. LEVOFLOXACIN 250 MG PO DAILY [Suspect]
     Indication: URINARY TRACT INFECTION
     Dosage: 250 MG PO DAILY
     Route: 048
     Dates: start: 20041228, end: 20041229
  2. CLOPIDOGREL [Concomitant]
  3. METOPROLOL TARTRATE [Concomitant]
  4. PANTOPRAZOLE [Concomitant]
  5. IMDUR [Concomitant]
  6. FUROSEMIDE [Concomitant]
  7. RANITIDINE [Concomitant]
  8. FESO4 [Concomitant]
  9. VIT C [Concomitant]

REACTIONS (7)
  - DRUG HYPERSENSITIVITY [None]
  - DYSPNOEA [None]
  - NEPHRITIS INTERSTITIAL [None]
  - RASH [None]
  - RASH ERYTHEMATOUS [None]
  - RASH GENERALISED [None]
  - RENAL FAILURE [None]
